FAERS Safety Report 17488846 (Version 1)
Quarter: 2020Q1

REPORT INFORMATION
  Report Type: Report from Study
  Country: DE (occurrence: DE)
  Receive Date: 20200303
  Receipt Date: 20200303
  Transmission Date: 20200409
  Serious: Yes (Hospitalization)
  Sender: FDA-Public Use
  Company Number: DE-PFIZER INC-2019219616

PATIENT
  Sex: Male

DRUGS (19)
  1. METHOTREXATE SODIUM. [Suspect]
     Active Substance: METHOTREXATE SODIUM
     Dosage: 15 MG, UNK
     Route: 065
  2. PANTOPRAZOLE [Concomitant]
     Active Substance: PANTOPRAZOLE
  3. METHOTREXATE SODIUM. [Suspect]
     Active Substance: METHOTREXATE SODIUM
     Dosage: 15 MG, UNK
     Route: 065
  4. ERELZI [Suspect]
     Active Substance: ETANERCEPT-SZZS
     Indication: RHEUMATOID ARTHRITIS
     Dosage: 25 MG, ONCE WEEKLY
     Route: 065
     Dates: start: 201509
  5. NOVAMINSULFON [Concomitant]
     Active Substance: METAMIZOLE
  6. RAMIPRIL. [Concomitant]
     Active Substance: RAMIPRIL
  7. METHOTREXATE SODIUM. [Suspect]
     Active Substance: METHOTREXATE SODIUM
     Dosage: 15 MG, UNK
     Route: 065
  8. NO SUBJECT DRUG [Suspect]
     Active Substance: UNSPECIFIED INGREDIENT
     Dosage: NO DOSE GIVEN
  9. METHOTREXATE SODIUM. [Suspect]
     Active Substance: METHOTREXATE SODIUM
     Dosage: 15 MG, UNK
     Route: 065
     Dates: start: 201712
  10. METHOTREXATE SODIUM. [Suspect]
     Active Substance: METHOTREXATE SODIUM
     Dosage: 15 MG, UNK
     Route: 065
  11. VIGANTOLETTEN [Concomitant]
     Active Substance: CHOLECALCIFEROL
  12. METHOTREXATE SODIUM. [Suspect]
     Active Substance: METHOTREXATE SODIUM
     Dosage: 15 MG, UNK
     Route: 065
     Dates: start: 201801
  13. FOLIC ACID. [Concomitant]
     Active Substance: FOLIC ACID
  14. METHOTREXATE SODIUM. [Suspect]
     Active Substance: METHOTREXATE SODIUM
     Dosage: 10 MG, UNK
     Route: 065
     Dates: start: 201509
  15. METHOTREXATE SODIUM. [Suspect]
     Active Substance: METHOTREXATE SODIUM
     Dosage: 15 MG, WEEKLY
     Route: 065
  16. METHOTREXATE SODIUM. [Suspect]
     Active Substance: METHOTREXATE SODIUM
     Dosage: 15 MG, UNK
     Route: 065
  17. ERELZI [Suspect]
     Active Substance: ETANERCEPT-SZZS
     Dosage: 25 MG, ONCE WEEKLY
     Route: 065
  18. ASPIRIN. [Concomitant]
     Active Substance: ASPIRIN
  19. PREDNISOLONE. [Concomitant]
     Active Substance: PREDNISOLONE

REACTIONS (2)
  - Chronic obstructive pulmonary disease [Not Recovered/Not Resolved]
  - Ureterolithiasis [Unknown]

NARRATIVE: CASE EVENT DATE: 20190131
